FAERS Safety Report 11242600 (Version 2)
Quarter: 2016Q3

REPORT INFORMATION
  Report Type: Spontaneous
  Country: DE (occurrence: DE)
  Receive Date: 20150702
  Receipt Date: 20160822
  Transmission Date: 20161109
  Serious: Yes (Other)
  Sender: FDA-Public Use
  Company Number: HRA-CDB20150182

PATIENT
  Sex: Female
  Weight: 61 kg

DRUGS (1)
  1. ELLA [Suspect]
     Active Substance: ULIPRISTAL ACETATE
     Route: 048
     Dates: start: 20150523, end: 20150523

REACTIONS (3)
  - Abortion spontaneous [None]
  - Unintended pregnancy [None]
  - Vaginal haemorrhage [None]

NARRATIVE: CASE EVENT DATE: 20150608
